FAERS Safety Report 9840164 (Version 1)
Quarter: 2014Q1

REPORT INFORMATION
  Report Type: Spontaneous
  Country: US (occurrence: None)
  Receive Date: 20140121
  Receipt Date: 20140121
  Transmission Date: 20141002
  Serious: Yes (Hospitalization)
  Sender: FDA-Public Use
  Company Number: None

PATIENT
  Age: 78 Year
  Sex: Male
  Weight: 82.36 kg

DRUGS (5)
  1. TEMOZOLOMIDE [Suspect]
     Dates: end: 20140102
  2. DASATINIB/PLACEBO [Concomitant]
  3. DEXAMETHASONE [Concomitant]
  4. KEPPRA [Concomitant]
  5. LOSARTAN [Concomitant]

REACTIONS (6)
  - Convulsion [None]
  - Postictal state [None]
  - Speech disorder [None]
  - Platelet count decreased [None]
  - White blood cell count decreased [None]
  - Activities of daily living impaired [None]
